FAERS Safety Report 21633885 (Version 1)
Quarter: 2022Q4

REPORT INFORMATION
  Report Type: Spontaneous
  Country: US (occurrence: None)
  Receive Date: 20221122
  Receipt Date: 20221122
  Transmission Date: 20230112
  Serious: Yes (Hospitalization)
  Sender: FDA-Public Use
  Company Number: None

PATIENT
  Sex: Female

DRUGS (1)
  1. HUMIRA [Suspect]
     Active Substance: ADALIMUMAB
     Indication: Rheumatoid arthritis
     Dosage: 40 MG/0.4ML SUBCUTANEOUS??INJECT 1 PEN (40MG) UNDER THE SKIN (SUBCUTANEOUS INJECTION) IN THE THIGH O
     Route: 058
     Dates: start: 20191022

REACTIONS (2)
  - Surgery [None]
  - Intentional dose omission [None]
